FAERS Safety Report 10149090 (Version 1)
Quarter: 2014Q2

REPORT INFORMATION
  Report Type: Spontaneous
  Country: US (occurrence: None)
  Receive Date: 20140430
  Receipt Date: 20140430
  Transmission Date: 20141212
  Serious: Yes (Other)
  Sender: FDA-Public Use
  Company Number: 001716799A

PATIENT
  Age: 49 Year
  Sex: Female

DRUGS (6)
  1. MB ANTIOXIDANT DAY CREME SPF 20 [Suspect]
     Dosage: TWICE DAILY DERMAL
     Dates: start: 20140319, end: 20140321
  2. MB SKIN BRIGHTENING DECOLLETE + NECK TREATMENT SPF 15 [Suspect]
     Dosage: TWICE DAILY DERMAL
     Dates: start: 20140319, end: 20140321
  3. EFFEXOR [Concomitant]
  4. NEURONTIN [Concomitant]
  5. CLARITIN [Concomitant]
  6. EPIPEN [Concomitant]

REACTIONS (2)
  - Rash erythematous [None]
  - Dyspnoea [None]
